FAERS Safety Report 9813440 (Version 2)
Quarter: 2014Q2

REPORT INFORMATION
  Report Type: Spontaneous
  Country: US (occurrence: US)
  Receive Date: 20140113
  Receipt Date: 20140410
  Transmission Date: 20141212
  Serious: Yes (Hospitalization, Other)
  Sender: FDA-Public Use
  Company Number: US-GILEAD-2014-0091870

PATIENT
  Sex: Female

DRUGS (4)
  1. LETAIRIS [Suspect]
     Indication: PULMONARY HYPERTENSION
     Dosage: 10 MG, QD
     Route: 065
     Dates: start: 20111027
  2. LETAIRIS [Suspect]
     Indication: HEART DISEASE CONGENITAL
  3. TYVASO [Concomitant]
  4. REVATIO [Concomitant]

REACTIONS (3)
  - Pneumonia [Unknown]
  - Medical device complication [Unknown]
  - Asthma [Unknown]
